FAERS Safety Report 10757767 (Version 1)
Quarter: 2015Q1

REPORT INFORMATION
  Report Type: Spontaneous
  Country: US (occurrence: None)
  Receive Date: 20150202
  Receipt Date: 20150202
  Transmission Date: 20150721
  Serious: Yes (Hospitalization)
  Sender: FDA-Public Use
  Company Number: None

PATIENT
  Age: 65 Year
  Sex: Female
  Weight: 102.06 kg

DRUGS (4)
  1. TOPOL XL [Concomitant]
  2. TERAZOSIN [Suspect]
     Active Substance: TERAZOSIN\TERAZOSIN HYDROCHLORIDE
     Indication: BLOOD PRESSURE
     Route: 048
     Dates: start: 20150119, end: 20150130
  3. NORVASC [Concomitant]
     Active Substance: AMLODIPINE BESYLATE
  4. VITAMIN D [Concomitant]
     Active Substance: CHOLECALCIFEROL

REACTIONS (7)
  - Rebound effect [None]
  - Hypothermia [None]
  - Chills [None]
  - Piloerection [None]
  - Nocturia [None]
  - Blood pressure abnormal [None]
  - Orthostatic intolerance [None]

NARRATIVE: CASE EVENT DATE: 20150130
